FAERS Safety Report 8459708-3 (Version None)
Quarter: 2012Q2

REPORT INFORMATION
  Report Type: 
  Country: None (occurrence: None)
  Receive Date: 20120622
  Receipt Date: 20120618
  Transmission Date: 20120825
  Serious: Yes (Hospitalization)
  Sender: FDA-Public Use
  Company Number: DE-JNJFOC-20120520705

PATIENT
  Age: 41 Year
  Sex: Male
  Weight: 80 kg

DRUGS (4)
  1. PREDNISOLONE [Concomitant]
     Dates: start: 20110301
  2. SIMPONI [Suspect]
     Indication: ANKYLOSING SPONDYLITIS
     Route: 058
     Dates: start: 20110914
  3. PREDNISOLONE [Concomitant]
     Dates: start: 20120410
  4. PREDNISOLONE [Concomitant]
     Dates: start: 20111006

REACTIONS (1)
  - CEREBELLAR INFARCTION [None]
